FAERS Safety Report 7454925-3 (Version None)
Quarter: 2011Q2

REPORT INFORMATION
  Report Type: 
  Country: None (occurrence: None)
  Receive Date: 20110425
  Receipt Date: 20110411
  Transmission Date: 20111010
  Serious: Yes (Other)
  Sender: FDA-Public Use
  Company Number: DKLU1069735

PATIENT
  Age: 61 Year
  Sex: Female

DRUGS (2)
  1. TRANXENE [Suspect]
     Indication: PRODUCT USED FOR UNKNOWN INDICATION
     Dosage: ORAL
     Route: 048
     Dates: start: 20090801, end: 20091201
  2. GANATON (ITOPRIDE HYDROCHLORIDE) (30 MG, TABLET) [Suspect]
     Indication: PRODUCT USED FOR UNKNOWN INDICATION
     Dosage: ORAL
     Route: 048
     Dates: start: 20090801, end: 20091101

REACTIONS (2)
  - LIVER DISORDER [None]
  - ERYTHEMA MULTIFORME [None]
